FAERS Safety Report 5274413-2 (Version None)
Quarter: 2007Q1

REPORT INFORMATION
  Report Type: 
  Country: None (occurrence: None)
  Receive Date: 20070323
  Receipt Date: 20070314
  Transmission Date: 20070707
  Serious: Yes (Other)
  Sender: FDA-Public Use
  Company Number: BR-PFIZER INC-2007015933

PATIENT
  Sex: Female

DRUGS (2)
  1. DOSTINEX [Suspect]
     Indication: HYPERPROLACTINAEMIA
     Route: 048
     Dates: start: 20070220, end: 20070221
  2. VITAMINS [Concomitant]
     Indication: ANAEMIA
     Route: 048

REACTIONS (4)
  - BREAST INDURATION [None]
  - BREAST PAIN [None]
  - DRUG INEFFECTIVE [None]
  - PYREXIA [None]
